FAERS Safety Report 7272248-2 (Version None)
Quarter: 2011Q1

REPORT INFORMATION
  Report Type: 
  Country: None (occurrence: None)
  Receive Date: 20110203
  Receipt Date: 20110121
  Transmission Date: 20110831
  Serious: Yes (Other)
  Sender: FDA-Public Use
  Company Number: PHHY2011US05445

PATIENT
  Sex: Female

DRUGS (4)
  1. MULTI-VITAMIN [Concomitant]
  2. DIOVAN [Suspect]
     Dosage: 160 MG, QD
  3. NORVASC [Concomitant]
  4. OMEGRA 3 [Concomitant]
     Dosage: UNK

REACTIONS (5)
  - MYALGIA [None]
  - FATIGUE [None]
  - URINARY TRACT DISORDER [None]
  - DIABETES MELLITUS [None]
  - VISION BLURRED [None]
